FAERS Safety Report 7200357-2 (Version None)
Quarter: 2010Q4

REPORT INFORMATION
  Report Type: 
  Country: None (occurrence: None)
  Receive Date: 20101228
  Receipt Date: 20101223
  Transmission Date: 20110411
  Serious: Yes (Death, Other)
  Sender: FDA-Public Use
  Company Number: US-BRISTOL-MYERS SQUIBB COMPANY-15461155

PATIENT
  Age: 83 Year
  Sex: Female

DRUGS (1)
  1. COUMADIN [Suspect]
     Dates: start: 19800101, end: 20100101

REACTIONS (3)
  - ATRIAL FIBRILLATION [None]
  - HAEMORRHAGE INTRACRANIAL [None]
  - NEOPLASM MALIGNANT [None]
